FAERS Safety Report 8833140 (Version 1)
Quarter: 2012Q4

REPORT INFORMATION
  Report Type: 
  Country: US (occurrence: US)
  Receive Date: 20121010
  Receipt Date: 20121010
  Transmission Date: 20130627
  Serious: No
  Sender: FDA-Public Use
  Company Number: US-B.I. PHARMACEUTICALS,INC./RIDGEFIELD-2012-BP-23624BP

PATIENT
  Sex: Male
  Weight: 88 kg

DRUGS (10)
  1. PRADAXA [Suspect]
     Indication: ATRIAL FIBRILLATION
     Dosage: 300 mg
     Route: 048
     Dates: start: 2010
  2. FINASTERIDE [Concomitant]
     Indication: BENIGN PROSTATIC HYPERPLASIA
     Dosage: 50 mg
     Route: 048
  3. VITAMIN B [Concomitant]
     Route: 048
  4. MULTIVITAMIN [Concomitant]
     Route: 048
  5. OMEGA OIL [Concomitant]
     Route: 048
  6. ATORVASTATIN [Concomitant]
     Indication: BLOOD CHOLESTEROL INCREASED
     Dosage: 10 mg
     Route: 048
  7. ALLOPURINOL [Concomitant]
     Indication: GOUT
     Dosage: 300 mg
     Route: 048
  8. OMEPRAZOLE [Concomitant]
     Indication: ABDOMINAL DISCOMFORT
     Dosage: 20 mg
     Route: 048
  9. ENALAPRIL [Concomitant]
     Indication: HYPERTENSION
     Dosage: 20 mg
     Route: 048
  10. CARVEDILOL [Concomitant]
     Indication: CARDIAC DISORDER
     Dosage: 50 mg
     Route: 048

REACTIONS (4)
  - Myalgia [Not Recovered/Not Resolved]
  - Myalgia [Not Recovered/Not Resolved]
  - Arthralgia [Not Recovered/Not Resolved]
  - Pain in extremity [Not Recovered/Not Resolved]
